FAERS Safety Report 10413975 (Version 1)
Quarter: 2014Q3

REPORT INFORMATION
  Report Type: Spontaneous
  Country: FR (occurrence: FR)
  Receive Date: 20140827
  Receipt Date: 20140827
  Transmission Date: 20150326
  Serious: Yes (Hospitalization)
  Sender: FDA-Public Use
  Company Number: FR-ABBVIE-14P-056-1276384-00

PATIENT
  Age: 39 Year
  Sex: Female

DRUGS (5)
  1. DERINOX [Suspect]
     Active Substance: NAPHAZOLINE NITRATE\PREDNISOLONE
     Indication: RHINITIS
     Dates: start: 20090318, end: 20090323
  2. MONONAXY [Suspect]
     Active Substance: CLARITHROMYCIN
     Indication: RHINITIS
     Route: 048
     Dates: start: 20090318, end: 20090323
  3. SOLUPRED [Concomitant]
     Active Substance: PREDNISOLONE
     Indication: PRODUCT USED FOR UNKNOWN INDICATION
     Dates: start: 20090314, end: 20090318
  4. PHOLCODINE [Suspect]
     Active Substance: PHOLCODINE
     Indication: RHINITIS
     Route: 048
     Dates: start: 20090318, end: 20090323
  5. DAILY [Concomitant]
     Active Substance: ETHINYL ESTRADIOL\LEVONORGESTREL
     Indication: PRODUCT USED FOR UNKNOWN INDICATION

REACTIONS (1)
  - Thrombocytopenic purpura [Recovered/Resolved]

NARRATIVE: CASE EVENT DATE: 20090326
